FAERS Safety Report 13901222 (Version 2)
Quarter: 2017Q3

REPORT INFORMATION
  Report Type: Report from Study
  Country: FR (occurrence: FR)
  Receive Date: 20170824
  Receipt Date: 20170915
  Transmission Date: 20171127
  Serious: Yes (Death, Life-Threatening, Other)
  Sender: FDA-Public Use
  Company Number: FR-SUN PHARMACEUTICAL INDUSTRIES LTD-2017R1-148233

PATIENT
  Age: 50 Year
  Sex: Female

DRUGS (2)
  1. STREPTOZOTOCIN [Suspect]
     Active Substance: STREPTOZOCIN
     Indication: PANCREATIC NEUROENDOCRINE TUMOUR
     Dosage: CYCLICAL
     Route: 065
  2. DOXORUBICIN [Suspect]
     Active Substance: DOXORUBICIN
     Indication: PANCREATIC NEUROENDOCRINE TUMOUR
     Dosage: CYCLICAL
     Route: 065

REACTIONS (5)
  - Cardiac failure [Fatal]
  - Electrocardiogram QT prolonged [Fatal]
  - Left ventricular dysfunction [Unknown]
  - Conduction disorder [Unknown]
  - Toxicity to various agents [Unknown]
